FAERS Safety Report 17097161 (Version 1)
Quarter: 2019Q4

REPORT INFORMATION
  Report Type: Spontaneous
  Country: US (occurrence: US)
  Receive Date: 20191129
  Receipt Date: 20191129
  Transmission Date: 20200122
  Serious: Yes (Death)
  Sender: FDA-Public Use
  Company Number: None

PATIENT
  Sex: Male

DRUGS (9)
  1. ALFUZOSIN [Concomitant]
     Active Substance: ALFUZOSIN
  2. DONEPEZIL. [Concomitant]
     Active Substance: DONEPEZIL
  3. OMEPRAZOLE. [Concomitant]
     Active Substance: OMEPRAZOLE
  4. LUPRON DEPOT [Suspect]
     Active Substance: LEUPROLIDE ACETATE
     Indication: PROSTATE CANCER
     Dosage: ?          OTHER FREQUENCY:EVERY THREE MONTHS;?
     Route: 030
     Dates: start: 20160223
  5. ASPRIN [Concomitant]
     Active Substance: ASPIRIN
  6. STOOL SOFTNER CAP [Concomitant]
  7. TRELSTAR [Concomitant]
     Active Substance: TRIPTORELIN PAMOATE
  8. ALLOPURINOL. [Concomitant]
     Active Substance: ALLOPURINOL
  9. DULOXETINE. [Concomitant]
     Active Substance: DULOXETINE

REACTIONS (1)
  - Death [None]
